FAERS Safety Report 22026916 (Version 3)
Quarter: 2023Q1

REPORT INFORMATION
  Report Type: Report from Study
  Country: FR (occurrence: None)
  Receive Date: 20230223
  Receipt Date: 20230315
  Transmission Date: 20230417
  Serious: Yes (Other)
  Sender: FDA-Public Use
  Company Number: FR-ROCHE-3269274

PATIENT
  Age: 67 Year
  Sex: Female
  Weight: 74 kg

DRUGS (2)
  1. RITUXIMAB [Suspect]
     Active Substance: RITUXIMAB
     Indication: Mantle cell lymphoma
     Dosage: LAST ADMINISTRATION BEFORE SAE: 12/DEC/2018
     Route: 058
     Dates: start: 20170125
  2. RITUXIMAB [Suspect]
     Active Substance: RITUXIMAB
     Dosage: LAST ADMINISTRATION BEFORE SAE: 12/DEC/2018
     Route: 058
     Dates: start: 202206, end: 202211

REACTIONS (1)
  - Lymphocytic leukaemia [Recovered/Resolved]

NARRATIVE: CASE EVENT DATE: 20200901
